FAERS Safety Report 10494817 (Version 1)
Quarter: 2014Q4

REPORT INFORMATION
  Report Type: Spontaneous
  Country: US (occurrence: None)
  Receive Date: 20141001
  Receipt Date: 20141001
  Transmission Date: 20150528
  Serious: Yes (Hospitalization, Other)
  Sender: FDA-Public Use
  Company Number: VAL_03447_2014

PATIENT
  Age: 12 Month
  Sex: Male

DRUGS (13)
  1. POLY-VI-SOL /07504101/ [Concomitant]
  2. SODIUM CHLORIDE. [Concomitant]
     Active Substance: SODIUM CHLORIDE
  3. ANCEF [Concomitant]
     Active Substance: CEFAZOLIN SODIUM
  4. ERGOCALCIFEROL. [Concomitant]
     Active Substance: ERGOCALCIFEROL
  5. MIRALAX [Concomitant]
     Active Substance: POLYETHYLENE GLYCOL 3350
  6. CALCITRIOL. [Suspect]
     Active Substance: CALCITRIOL
     Indication: PRODUCT USED FOR UNKNOWN INDICATION
  7. SODIUM PHOSPHATE [Concomitant]
     Active Substance: SODIUM PHOSPHATE
  8. NUTROPIN AQ [Suspect]
     Active Substance: SOMATROPIN
     Indication: CHRONIC KIDNEY DISEASE
     Route: 058
  9. FERROUS SULFATE [Concomitant]
     Active Substance: FERROUS SULFATE\FERROUS SULFATE, DRIED
  10. PRIMSOL [Concomitant]
     Active Substance: TRIMETHOPRIM HYDROCHLORIDE
  11. NYSTATIN. [Concomitant]
     Active Substance: NYSTATIN
  12. ALBUTEROL /00139501/ [Concomitant]
     Active Substance: ALBUTEROL
  13. EPO [Concomitant]
     Active Substance: ERYTHROPOIETIN

REACTIONS (13)
  - Peritonitis [None]
  - Eye discharge [None]
  - Feeling abnormal [None]
  - Dermatitis diaper [None]
  - Bronchiolitis [None]
  - Upper respiratory tract infection [None]
  - Feeding disorder of infancy or early childhood [None]
  - Nasal congestion [None]
  - Cough [None]
  - Retching [None]
  - Lacrimation increased [None]
  - Abdominal pain [None]
  - Bronchial hyperreactivity [None]

NARRATIVE: CASE EVENT DATE: 20111002
